FAERS Safety Report 12269141 (Version 1)
Quarter: 2016Q2

REPORT INFORMATION
  Report Type: Spontaneous
  Country: FR (occurrence: FR)
  Receive Date: 20160414
  Receipt Date: 20160414
  Transmission Date: 20160815
  Serious: Yes (Other)
  Sender: FDA-Public Use
  Company Number: FR-ELI_LILLY_AND_COMPANY-FR201604000635

PATIENT
  Sex: Female

DRUGS (3)
  1. ALIMTA [Suspect]
     Active Substance: PEMETREXED DISODIUM
     Indication: LYMPHANGIOSIS CARCINOMATOSA
     Dosage: UNK
     Route: 042
     Dates: start: 201501, end: 201511
  2. CARBOPLATIN. [Suspect]
     Active Substance: CARBOPLATIN
     Indication: LYMPHANGIOSIS CARCINOMATOSA
     Dosage: UNK
     Route: 042
     Dates: start: 201501, end: 201509
  3. AVASTIN [Suspect]
     Active Substance: BEVACIZUMAB
     Indication: LYMPHANGIOSIS CARCINOMATOSA
     Dosage: 7.5 MG/KG (510 MG), CYCLICAL EVERY 15 DAYS
     Route: 042
     Dates: start: 201501, end: 20151229

REACTIONS (2)
  - Periarthritis [Not Recovered/Not Resolved]
  - Off label use [Recovered/Resolved]

NARRATIVE: CASE EVENT DATE: 2015
